FAERS Safety Report 10156439 (Version 2)
Quarter: 2014Q2

REPORT INFORMATION
  Report Type: Spontaneous
  Country: US (occurrence: US)
  Receive Date: 20140507
  Receipt Date: 20140616
  Transmission Date: 20141212
  Serious: No
  Sender: FDA-Public Use
  Company Number: US-SHIRE-US201401973

PATIENT
  Age: 25 Year
  Sex: Female
  Weight: 57.14 kg

DRUGS (5)
  1. ADVIL                              /00044201/ [Concomitant]
     Indication: HEADACHE
     Dosage: 400 MG, AS REQ^D
     Route: 048
  2. VYVANSE [Suspect]
     Indication: ATTENTION DEFICIT/HYPERACTIVITY DISORDER
     Dosage: 20 MG, 1X/DAY:QD
     Route: 048
     Dates: start: 201310, end: 2013
  3. VYVANSE [Suspect]
     Dosage: 30 MG, 1X/DAY:QD
     Route: 048
     Dates: start: 2013
  4. SEASONIQUE [Concomitant]
     Indication: MUSCLE SPASMS
     Dosage: UNK, 1X/DAY:QD
     Route: 048
     Dates: start: 2010
  5. VITAMINS NOS [Concomitant]
     Indication: SUPPLEMENTATION THERAPY
     Dosage: UNK, 1X/DAY:QD
     Route: 048
     Dates: start: 2012

REACTIONS (2)
  - Somnolence [Not Recovered/Not Resolved]
  - Drug ineffective [Not Recovered/Not Resolved]
